FAERS Safety Report 19242871 (Version 2)
Quarter: 2021Q3

REPORT INFORMATION
  Report Type: Spontaneous
  Country: US (occurrence: US)
  Receive Date: 20210510
  Receipt Date: 20210916
  Transmission Date: 20211014
  Serious: Yes (Other)
  Sender: FDA-Public Use
  Company Number: US-DRREDDYS-USA/USA/21/0135254

PATIENT
  Age: 67 Year
  Sex: Female

DRUGS (4)
  1. SALINE [Concomitant]
     Active Substance: SODIUM CHLORIDE
     Indication: TRANSITIONAL CELL CARCINOMA
     Dosage: GEMCITABINE TO BE GIVEN AS A 30? MIN INTRAVENOUS INFUSION IN 500 ML NORMAL SALINE  ON DAYS 1 AND 8 O
     Route: 041
     Dates: start: 201510
  2. GEMCITABINE. [Suspect]
     Active Substance: GEMCITABINE
     Indication: TRANSITIONAL CELL CARCINOMA
     Dosage: GIVEN ON DAYS 1 AND 8 OF EACH CYCLE (GEMCITABINE TO BE GIVEN AS A 30? MIN INTRAVENOUS INFUSION IN 50
     Route: 041
     Dates: start: 201510
  3. SALINE [Concomitant]
     Active Substance: SODIUM CHLORIDE
     Dosage: 4?H INTRAVENOUS INFUSION IN 1 L SALINE WAS GIVEN ON DAY 1
     Route: 041
     Dates: start: 201510
  4. CISPLATIN. [Suspect]
     Active Substance: CISPLATIN
     Indication: TRANSITIONAL CELL CARCINOMA
     Dosage: WAS GIVEN ON DAY 1 (CISPLATIN AS A 4?H INTRAVENOUS INFUSION IN 1 L SALINE)
     Route: 041
     Dates: start: 201510

REACTIONS (5)
  - Anaemia [Unknown]
  - Diarrhoea [Unknown]
  - Neutropenia [Unknown]
  - Nausea [Unknown]
  - Depression [Unknown]

NARRATIVE: CASE EVENT DATE: 2015
